FAERS Safety Report 11272216 (Version 1)
Quarter: 2015Q3

REPORT INFORMATION
  Report Type: Spontaneous
  Country: US (occurrence: None)
  Receive Date: 20150713
  Receipt Date: 20150713
  Transmission Date: 20151125
  Serious: Yes (Hospitalization)
  Sender: FDA-Public Use
  Company Number: None

PATIENT
  Age: 82 Year
  Sex: Female
  Weight: 60.78 kg

DRUGS (7)
  1. LASIX [Concomitant]
     Active Substance: FUROSEMIDE
  2. VALSARTAN. [Concomitant]
     Active Substance: VALSARTAN
  3. XARELTO [Concomitant]
     Active Substance: RIVAROXABAN
  4. FISH OIL [Concomitant]
     Active Substance: FISH OIL
  5. CALCIUM [Concomitant]
     Active Substance: CALCIUM
  6. AMIODARONE 200MG [Suspect]
     Active Substance: AMIODARONE
     Indication: ARRHYTHMIA
     Dates: start: 20150531, end: 20150704
  7. ONE-A-DAY NOS [Concomitant]
     Active Substance: MINERALS\VITAMINS

REACTIONS (2)
  - Fluid retention [None]
  - Pleural effusion [None]

NARRATIVE: CASE EVENT DATE: 20150704
